FAERS Safety Report 7009610-9 (Version None)
Quarter: 2010Q3

REPORT INFORMATION
  Report Type: 
  Country: None (occurrence: None)
  Receive Date: 20100903
  Receipt Date: 20100616
  Transmission Date: 20110219
  Serious: Yes (Other)
  Sender: FDA-Public Use
  Company Number: 2010061930

PATIENT
  Sex: Female

DRUGS (1)
  1. DETROL LA [Suspect]
     Dosage: UNK ORAL
     Route: 048
     Dates: start: 20100101, end: 20100101

REACTIONS (3)
  - HEADACHE [None]
  - INSOMNIA [None]
  - PALPITATIONS [None]
